FAERS Safety Report 7950400-8 (Version None)
Quarter: 2011Q4

REPORT INFORMATION
  Report Type: 
  Country: None (occurrence: None)
  Receive Date: 20111130
  Receipt Date: 20111121
  Transmission Date: 20120403
  Serious: Yes (Hospitalization)
  Sender: FDA-Public Use
  Company Number: IE-MEDIMMUNE-MEDI-0013963

PATIENT
  Sex: Male
  Weight: 4.66 kg

DRUGS (2)
  1. SYNAGIS [Suspect]
     Route: 030
  2. SYNAGIS [Suspect]
     Route: 030
     Dates: start: 20111020, end: 20111020

REACTIONS (1)
  - OEDEMA PERIPHERAL [None]
